FAERS Safety Report 16412672 (Version 1)
Quarter: 2019Q2

REPORT INFORMATION
  Report Type: Spontaneous
  Country: JP (occurrence: JP)
  Receive Date: 20190611
  Receipt Date: 20190611
  Transmission Date: 20190711
  Serious: Yes (Other)
  Sender: FDA-Public Use
  Company Number: JP-B.I. PHARMACEUTICALS,INC./RIDGEFIELD-2019-NB-002534

PATIENT
  Sex: Female

DRUGS (1)
  1. PERSANTINE [Suspect]
     Active Substance: DIPYRIDAMOLE
     Indication: NEPHROPATHY
     Route: 065

REACTIONS (1)
  - Surgery [Unknown]
